FAERS Safety Report 5107048-2 (Version None)
Quarter: 2006Q3

REPORT INFORMATION
  Report Type: 
  Country: None (occurrence: None)
  Receive Date: 20060913
  Receipt Date: 20060829
  Transmission Date: 20061208
  Serious: Yes (Hospitalization)
  Sender: FDA-Public Use
  Company Number: 2006RR-03656

PATIENT
  Age: 40 Year
  Sex: Female

DRUGS (4)
  1. FLUOXETINE [Suspect]
     Indication: DEPRESSION
     Dosage: 20 MG, ORAL
     Route: 048
     Dates: start: 20060403, end: 20060410
  2. BECLAZONE [Concomitant]
  3. OMEPRAZOLE [Concomitant]
  4. SALBUTAMOL BP  (SALBUMATOL) [Concomitant]

REACTIONS (2)
  - ABDOMINAL PAIN [None]
  - NAUSEA [None]
